FAERS Safety Report 26074776 (Version 1)
Quarter: 2025Q4

REPORT INFORMATION
  Report Type: Spontaneous
  Country: EU (occurrence: EU)
  Receive Date: 20251121
  Receipt Date: 20251121
  Transmission Date: 20260117
  Serious: Yes (Hospitalization)
  Sender: TEVA
  Company Number: None

PATIENT
  Age: 84 Year
  Sex: Male
  Weight: 73 kg

DRUGS (3)
  1. OFLOXACIN [Suspect]
     Active Substance: OFLOXACIN
     Indication: Colitis
     Route: 048
     Dates: start: 20251014, end: 20251021
  2. METRONIDAZOLE [Suspect]
     Active Substance: METRONIDAZOLE
     Indication: Colitis
     Dosage: DOSAGE NOT PROVIDED, FILM-COATED SCORED TABLET
     Route: 042
     Dates: start: 20251010, end: 20251014
  3. METRONIDAZOLE [Suspect]
     Active Substance: METRONIDAZOLE
     Indication: Colitis
     Dosage: FILM-COATED SCORED TABLET
     Route: 048
     Dates: start: 20251014, end: 20251021

REACTIONS (5)
  - Anxiety [Unknown]
  - Hallucination [Unknown]
  - Suicidal ideation [Unknown]
  - Crying [Unknown]
  - Sleep disorder [Unknown]

NARRATIVE: CASE EVENT DATE: 20251018
